FAERS Safety Report 5809698-4 (Version None)
Quarter: 2008Q3

REPORT INFORMATION
  Report Type: 
  Country: None (occurrence: None)
  Receive Date: 20080711
  Receipt Date: 20080711
  Transmission Date: 20090109
  Serious: Yes (Hospitalization)
  Sender: FDA-Public Use
  Company Number: None

PATIENT
  Age: 87 Year
  Sex: Female
  Weight: 61.2356 kg

DRUGS (2)
  1. DIGITEK 0.125MG MYLAN [Suspect]
     Indication: CARDIAC FAILURE
     Dosage: 0.125 1 X DAILY PO
     Route: 048
     Dates: start: 20070117, end: 20071231
  2. DIGITEK 0.125MG MYLAN [Suspect]
     Indication: HEART RATE IRREGULAR
     Dosage: 0.125 1 X DAILY PO
     Route: 048
     Dates: start: 20070117, end: 20071231

REACTIONS (3)
  - CARDIAC FAILURE CONGESTIVE [None]
  - DIZZINESS [None]
  - NAUSEA [None]
